FAERS Safety Report 9999470 (Version 2)
Quarter: 2014Q1

REPORT INFORMATION
  Report Type: Spontaneous
  Country: JP (occurrence: JP)
  Receive Date: 20140312
  Receipt Date: 20140312
  Transmission Date: 20141002
  Serious: Yes (Hospitalization)
  Sender: FDA-Public Use
  Company Number: JP-SA-2013SA114304

PATIENT
  Age: 18 Year
  Sex: Male

DRUGS (9)
  1. CARBOPLATIN [Suspect]
     Indication: MEDULLOBLASTOMA
     Route: 065
  2. FLUDARABINE PHOSPHATE [Suspect]
     Indication: MEDULLOBLASTOMA
     Route: 065
  3. METHOTREXATE [Suspect]
     Indication: PROPHYLAXIS AGAINST GRAFT VERSUS HOST DISEASE
     Route: 065
  4. CISPLATIN [Suspect]
     Indication: MEDULLOBLASTOMA
     Route: 065
  5. AZACITIDINE [Suspect]
     Indication: MEDULLOBLASTOMA
     Route: 065
  6. AZACITIDINE [Suspect]
     Indication: MEDULLOBLASTOMA
     Route: 065
  7. MELPHALAN [Suspect]
     Indication: MEDULLOBLASTOMA
     Route: 065
  8. CYCLOSPORIN [Suspect]
     Indication: PROPHYLAXIS AGAINST GRAFT VERSUS HOST DISEASE
     Route: 065
  9. THERAPEUTIC RADIOPHARMACEUTICALS [Suspect]
     Indication: MEDULLOBLASTOMA
     Dosage: DOSE:4 GY
     Route: 065

REACTIONS (10)
  - Thrombotic microangiopathy [Recovered/Resolved]
  - Fibrin D dimer increased [Recovered/Resolved]
  - Renal failure acute [Recovered/Resolved]
  - Renal impairment [Recovered/Resolved]
  - Anuria [Recovered/Resolved]
  - Oedema [Recovered/Resolved]
  - Myelodysplastic syndrome [Unknown]
  - Anaemia [Unknown]
  - Thrombocytopenia [Unknown]
  - Off label use [Unknown]
